FAERS Safety Report 8500496-X (Version None)
Quarter: 2012Q3

REPORT INFORMATION
  Report Type: 
  Country: None (occurrence: None)
  Receive Date: 20120705
  Receipt Date: 20120705
  Transmission Date: 20120928
  Serious: Yes (Hospitalization)
  Sender: FDA-Public Use
  Company Number: None

PATIENT
  Sex: Male
  Weight: 59.5 kg

DRUGS (1)
  1. ERBITUX [Suspect]
     Dosage: 424 MG EVENT OCCURRED AFTER 6TH DOSE OF CETUXIMAB

REACTIONS (7)
  - VOMITING [None]
  - MUCOSAL INFLAMMATION [None]
  - HYPOPHAGIA [None]
  - CLOSTRIDIUM TEST POSITIVE [None]
  - NAUSEA [None]
  - PYREXIA [None]
  - DIARRHOEA [None]
